FAERS Safety Report 5086805-5 (Version None)
Quarter: 2006Q3

REPORT INFORMATION
  Report Type: 
  Country: None (occurrence: None)
  Receive Date: 20060823
  Receipt Date: 20060320
  Transmission Date: 20061208
  Serious: Yes (Disabling)
  Sender: FDA-Public Use
  Company Number: JP-GILEAD-2006-0009337

PATIENT
  Sex: Male

DRUGS (15)
  1. HEPSERA [Suspect]
     Indication: HEPATIC CIRRHOSIS
     Route: 048
     Dates: start: 20020311, end: 20060101
  2. HEPSERA [Suspect]
     Indication: HEPATITIS B
  3. PROGRAF [Suspect]
     Indication: DRUG USE FOR UNKNOWN INDICATION
     Dates: start: 20020501, end: 20051206
  4. CELLCEPT [Suspect]
     Indication: DRUG USE FOR UNKNOWN INDICATION
     Dates: start: 20020701
  5. PREDONINE [Suspect]
     Indication: DRUG USE FOR UNKNOWN INDICATION
     Dates: start: 20020601, end: 20050914
  6. ZEFFIX [Suspect]
     Indication: HEPATIC CIRRHOSIS
     Dates: start: 20000101, end: 20041201
  7. TAKEPRON [Concomitant]
  8. MUCOSTA [Concomitant]
     Dates: start: 20020501
  9. LOXONIN [Concomitant]
  10. AMINOLEBAN EN [Concomitant]
     Dates: start: 20020501
  11. ZOVIRAX [Concomitant]
     Dates: start: 20020501
  12. DAONIL [Concomitant]
     Dates: start: 20020701
  13. PARIET [Concomitant]
     Dates: start: 20020501
  14. PERSANTIN [Concomitant]
     Dates: start: 20020501
  15. URSO [Concomitant]
     Dates: start: 20020501

REACTIONS (25)
  - ALANINE AMINOTRANSFERASE INCREASED [None]
  - ARTHRALGIA [None]
  - ASPARTATE AMINOTRANSFERASE INCREASED [None]
  - BLOOD ALKALINE PHOSPHATASE INCREASED [None]
  - BLOOD BILIRUBIN INCREASED [None]
  - BLOOD CHLORIDE INCREASED [None]
  - BLOOD CREATININE INCREASED [None]
  - BLOOD LACTATE DEHYDROGENASE INCREASED [None]
  - BLOOD UREA [None]
  - BONE DENSITY DECREASED [None]
  - CREATINE PHOSPHOKINASE DECREASED [None]
  - DRUG LEVEL INCREASED [None]
  - GAMMA-GLUTAMYLTRANSFERASE INCREASED [None]
  - HAEMATOCRIT DECREASED [None]
  - HAEMOGLOBIN DECREASED [None]
  - HYPOPHOSPHATAEMIA [None]
  - MONOCYTE COUNT INCREASED [None]
  - MUSCLE ATROPHY [None]
  - OSTEOMALACIA [None]
  - OSTEOPOROSIS [None]
  - PLATELET COUNT DECREASED [None]
  - PROTEIN TOTAL DECREASED [None]
  - RED BLOOD CELL COUNT DECREASED [None]
  - RENAL TUBULAR DISORDER [None]
  - WHITE BLOOD CELL COUNT DECREASED [None]
